FAERS Safety Report 16746825 (Version 2)
Quarter: 2020Q1

REPORT INFORMATION
  Report Type: Spontaneous
  Country: US (occurrence: US)
  Receive Date: 20190827
  Receipt Date: 20200220
  Transmission Date: 20200409
  Serious: Yes (Hospitalization)
  Sender: FDA-Public Use
  Company Number: US-SA-2019SA232266

PATIENT
  Age: 54 Year
  Sex: Female

DRUGS (1)
  1. DUPIXENT [Suspect]
     Active Substance: DUPILUMAB
     Indication: PRODUCT USED FOR UNKNOWN INDICATION
     Dosage: 300 MG, QOW
     Route: 058
     Dates: start: 20190725

REACTIONS (2)
  - Somnolence [Recovered/Resolved]
  - Surgery [Recovered/Resolved]

NARRATIVE: CASE EVENT DATE: 20190808
